FAERS Safety Report 17083472 (Version 1)
Quarter: 2019Q4

REPORT INFORMATION
  Report Type: Spontaneous
  Country: GB (occurrence: GB)
  Receive Date: 20191127
  Receipt Date: 20191127
  Transmission Date: 20200122
  Serious: Yes (Congenital Anomaly)
  Sender: FDA-Public Use
  Company Number: GB-ABBVIE-19K-167-3172599-00

PATIENT
  Age: 36 Year
  Sex: Female

DRUGS (2)
  1. SULFASALAZINE. [Concomitant]
     Active Substance: SULFASALAZINE
     Indication: ARTHRITIS
     Route: 048
  2. HUMIRA [Suspect]
     Active Substance: ADALIMUMAB
     Indication: ARTHRITIS
     Route: 058

REACTIONS (3)
  - Maternal exposure during pregnancy [Unknown]
  - Developmental delay [Not Recovered/Not Resolved]
  - Microcephaly [Not Recovered/Not Resolved]

NARRATIVE: CASE EVENT DATE: 20171107
